FAERS Safety Report 23390549 (Version 1)
Quarter: 2024Q1

REPORT INFORMATION
  Report Type: Spontaneous
  Country: CA (occurrence: CA)
  Receive Date: 20240111
  Receipt Date: 20240111
  Transmission Date: 20240409
  Serious: Yes (Other)
  Sender: FDA-Public Use
  Company Number: CA-AMGEN-CANSP2024004747

PATIENT
  Age: 31 Year
  Sex: Female
  Weight: 71 kg

DRUGS (1)
  1. NEUPOGEN [Suspect]
     Active Substance: FILGRASTIM
     Indication: Product used for unknown indication
     Dosage: 600 MICROGRAM, QD (1 EVERY DAY FOR 4 DAYS)
     Route: 058

REACTIONS (3)
  - Dysmenorrhoea [Recovered/Resolved]
  - Polymenorrhoea [Recovered/Resolved]
  - Fatigue [Recovered/Resolved]
